FAERS Safety Report 13563963 (Version 1)
Quarter: 2017Q2

REPORT INFORMATION
  Report Type: Spontaneous
  Country: FR (occurrence: FR)
  Receive Date: 20170519
  Receipt Date: 20170519
  Transmission Date: 20170830
  Serious: Yes (Hospitalization)
  Sender: FDA-Public Use
  Company Number: FR-JNJFOC-20170516234

PATIENT
  Age: 30 Year
  Sex: Female

DRUGS (3)
  1. METOJECT [Suspect]
     Active Substance: METHOTREXATE SODIUM
     Indication: SARCOIDOSIS
     Route: 042
     Dates: start: 2013, end: 20170414
  2. CORTANCYL [Concomitant]
     Active Substance: PREDNISONE
     Indication: SARCOIDOSIS
     Route: 048
     Dates: start: 2013, end: 20170414
  3. REMICADE [Suspect]
     Active Substance: INFLIXIMAB
     Indication: SARCOIDOSIS
     Route: 042
     Dates: start: 2013, end: 20170414

REACTIONS (4)
  - Mouth ulceration [Not Recovered/Not Resolved]
  - Off label use [Unknown]
  - Stomatitis [Not Recovered/Not Resolved]
  - Product use in unapproved indication [Unknown]

NARRATIVE: CASE EVENT DATE: 2013
